FAERS Safety Report 6213997 (Version 2)
Quarter: 2013Q3

REPORT INFORMATION
  Report Type: Spontaneous
  Country: GB (occurrence: None)
  Receive Date: 20061227
  Receipt Date: 20130809
  Transmission Date: 20140515
  Serious: No
  Sender: FDA-Public Use
  Company Number: 2006US-04920

PATIENT
  Age: 53 Year
  Sex: Female

DRUGS (1)
  1. FENTANYL [Suspect]
     Indication: ANALGESIC THERAPY
     Dosage: 100 MCG/HR
     Route: 064

REACTIONS (1)
  - Hyperhidrosis [None]
